FAERS Safety Report 23341743 (Version 1)
Quarter: 2023Q4

REPORT INFORMATION
  Report Type: Spontaneous
  Country: US (occurrence: US)
  Receive Date: 20231227
  Receipt Date: 20231227
  Transmission Date: 20240110
  Serious: No
  Sender: FDA-Public Use
  Company Number: US-BAYER-2023A184798

PATIENT
  Sex: Female

DRUGS (1)
  1. ALEVE [Suspect]
     Active Substance: NAPROXEN SODIUM
     Dosage: TWO TABLETS AT DAY AND TWO AT NIGHT.
     Route: 048

REACTIONS (2)
  - Extra dose administered [Unknown]
  - Incorrect product administration duration [Unknown]
